FAERS Safety Report 8534281-X (Version None)
Quarter: 2012Q3

REPORT INFORMATION
  Report Type: 
  Country: None (occurrence: None)
  Receive Date: 20120724
  Receipt Date: 20120717
  Transmission Date: 20120928
  Serious: Yes (Other)
  Sender: FDA-Public Use
  Company Number: IT-ASTRAZENECA-2012SE50370

PATIENT
  Age: 78 Year
  Sex: Male

DRUGS (6)
  1. BRILINTA [Suspect]
     Route: 048
  2. ASPIRIN [Concomitant]
  3. AMLODIPINE [Concomitant]
  4. ATORVASTATIN CALCIUM [Concomitant]
  5. TELMISARTAN [Concomitant]
  6. LANSOPRAZOLE [Concomitant]

REACTIONS (1)
  - VASCULITIS [None]
